FAERS Safety Report 7819624-4 (Version None)
Quarter: 2011Q4

REPORT INFORMATION
  Report Type: 
  Country: None (occurrence: None)
  Receive Date: 20111018
  Receipt Date: 20111018
  Transmission Date: 20120403
  Serious: Yes (Other)
  Sender: FDA-Public Use
  Company Number: None

PATIENT
  Sex: Male
  Weight: 3.2 kg

DRUGS (1)
  1. CEFOTAXIME [Suspect]
     Dosage: 145MG
     Route: 042

REACTIONS (1)
  - RASH GENERALISED [None]
